FAERS Safety Report 19411836 (Version 1)
Quarter: 2021Q2

REPORT INFORMATION
  Report Type: Spontaneous
  Country: US (occurrence: US)
  Receive Date: 20210614
  Receipt Date: 20210614
  Transmission Date: 20210717
  Serious: Yes (Hospitalization)
  Sender: FDA-Public Use
  Company Number: None

PATIENT
  Sex: Male

DRUGS (22)
  1. MAVYRET [Concomitant]
     Active Substance: GLECAPREVIR\PIBRENTASVIR
  2. VALGANCICLOV [Concomitant]
  3. MYCOPHENOLATE [Concomitant]
     Active Substance: MYCOPHENOLIC ACID
  4. DOK [Concomitant]
     Active Substance: DOCUSATE SODIUM
  5. MAG OXIDE [Concomitant]
     Active Substance: MAGNESIUM OXIDE
  6. INSULIN LISP [Concomitant]
  7. LOSARTAN. [Concomitant]
     Active Substance: LOSARTAN
  8. AMLODIPINE [Concomitant]
     Active Substance: AMLODIPINE BESYLATE
  9. LAMIVUDINE. [Concomitant]
     Active Substance: LAMIVUDINE
  10. TAMSULOSIN [Concomitant]
     Active Substance: TAMSULOSIN
  11. SMZ?TMP [Concomitant]
     Active Substance: SULFAMETHOXAZOLE\TRIMETHOPRIM
  12. PRESERVISION CAP [Concomitant]
  13. PREDNISONE. [Concomitant]
     Active Substance: PREDNISONE
  14. ALLOPURINOL. [Concomitant]
     Active Substance: ALLOPURINOL
  15. DULOXETINE. [Concomitant]
     Active Substance: DULOXETINE
  16. PANTOPRAZOLE [Concomitant]
     Active Substance: PANTOPRAZOLE
  17. HYDRALAZINE [Concomitant]
     Active Substance: HYDRALAZINE HYDROCHLORIDE
  18. OXYCOD/APA [Concomitant]
  19. MAVYRET [Suspect]
     Active Substance: GLECAPREVIR\PIBRENTASVIR
     Indication: CHRONIC HEPATITIS C
     Route: 048
     Dates: start: 20210514
  20. TOUJEO [Concomitant]
     Active Substance: INSULIN GLARGINE
  21. CARVEDILOL. [Concomitant]
     Active Substance: CARVEDILOL
  22. TACROLIMUS. [Concomitant]
     Active Substance: TACROLIMUS

REACTIONS (1)
  - Urinary tract infection [None]
